FAERS Safety Report 18565952 (Version 2)
Quarter: 2020Q4

REPORT INFORMATION
  Report Type: Spontaneous
  Country: JP (occurrence: JP)
  Receive Date: 20201201
  Receipt Date: 20201217
  Transmission Date: 20210114
  Serious: Yes (Death, Other)
  Sender: FDA-Public Use
  Company Number: JP-BRISTOL-MYERS SQUIBB COMPANY-BMS-2020-017437

PATIENT
  Age: 7 Decade
  Sex: Male

DRUGS (3)
  1. OPDIVO [Suspect]
     Active Substance: NIVOLUMAB
     Indication: RENAL CELL CARCINOMA
     Dosage: UNKNOWN
     Route: 041
  2. YERVOY [Suspect]
     Active Substance: IPILIMUMAB
     Indication: RENAL CELL CARCINOMA
     Dosage: UNKNOWN
     Route: 041
  3. INLYTA [Suspect]
     Active Substance: AXITINIB
     Indication: RENAL CELL CARCINOMA
     Dosage: UNK
     Route: 065

REACTIONS (2)
  - Interstitial lung disease [Recovered/Resolved]
  - Intestinal perforation [Fatal]

NARRATIVE: CASE EVENT DATE: 202010
